FAERS Safety Report 10170783 (Version 1)
Quarter: 2014Q2

REPORT INFORMATION
  Report Type: Spontaneous
  Country: US (occurrence: US)
  Receive Date: 20140514
  Receipt Date: 20140514
  Transmission Date: 20141212
  Serious: Yes (Other)
  Sender: FDA-Public Use
  Company Number: US-ASTRAZENECA-2014SE31867

PATIENT
  Sex: Male

DRUGS (4)
  1. OMEPRAZOLE [Suspect]
     Route: 048
  2. CRESTOR [Suspect]
     Route: 048
  3. CRESTOR [Suspect]
     Route: 048
     Dates: start: 2014
  4. GENERIC MEDICATION [Concomitant]

REACTIONS (7)
  - Cerebrovascular accident [Unknown]
  - Hepatic cancer [Unknown]
  - Aphasia [Unknown]
  - Speech disorder [Unknown]
  - Aphagia [Unknown]
  - Fatigue [Unknown]
  - Adverse event [Unknown]
